FAERS Safety Report 5890305-X (Version None)
Quarter: 2008Q3

REPORT INFORMATION
  Report Type: 
  Country: None (occurrence: None)
  Receive Date: 20080918
  Receipt Date: 20080912
  Transmission Date: 20090109
  Serious: Yes (Other)
  Sender: FDA-Public Use
  Company Number: CIO08012786

PATIENT
  Age: 82 Year
  Sex: Male
  Weight: 88.4 kg

DRUGS (7)
  1. VAPORUB, REGULAR SCENT (CAMPHOR 143.07 MG, CEDAR LEAF OIL 20.14 MG, EU [Suspect]
     Dosage: 1 APPLIC, 2/DAY, TOPICAL
     Route: 061
     Dates: start: 20080123, end: 20080723
  2. BETOPIC /00008501/ (BETAMETHASONE) [Suspect]
     Dosage: 1 DROP, 2/DAY, OPTHALMIC
     Route: 047
  3. GLUCOTROL XL [Concomitant]
  4. GLUCOPHAGE /00082701/(METFORMIN) [Concomitant]
  5. AZMACORT [Concomitant]
  6. ZOCOR [Concomitant]
  7. ZILATRAM [Concomitant]

REACTIONS (2)
  - ATRIOVENTRICULAR BLOCK SECOND DEGREE [None]
  - DRUG ADMINISTERED AT INAPPROPRIATE SITE [None]
